APPROVED DRUG PRODUCT: IBUPROHM
Active Ingredient: IBUPROFEN
Strength: 200MG
Dosage Form/Route: TABLET;ORAL
Application: A071214 | Product #001
Applicant: OHM LABORATORIES INC
Approved: Dec 1, 1986 | RLD: No | RS: No | Type: DISCN